FAERS Safety Report 8584110 (Version 4)
Quarter: 2013Q4

REPORT INFORMATION
  Report Type: Spontaneous
  Country: DE (occurrence: None)
  Receive Date: 20120515
  Receipt Date: 20131029
  Transmission Date: 20140711
  Serious: Yes (Death, Hospitalization)
  Sender: FDA-Public Use
  Company Number: 2012032263

PATIENT
  Age: 60 Year
  Sex: Male

DRUGS (5)
  1. PRIVIGEN [Suspect]
     Indication: CHRONIC LYMPHOCYTIC LEUKAEMIA
     Dosage: 20 G, INFUSION RATE 1.1 - 2.0 ML/MIN, 20 G QD  1 HOUR 25 MINS  : INFUSION RATE: 1.0 - 2.3 ML/MIN??(NOT OTHERWISE SPECIFIED)
     Route: 042
     Dates: start: 20120329, end: 20120329
  2. PRIVIGEN [Suspect]
     Indication: SECONDARY IMMUNODEFICIENCY
     Dosage: 20 G, INFUSION RATE 1.1 - 2.0 ML/MIN, 20 G QD  1 HOUR 25 MINS  : INFUSION RATE: 1.0 - 2.3 ML/MIN??(NOT OTHERWISE SPECIFIED)
     Route: 042
     Dates: start: 20120329, end: 20120329
  3. ALLOPURINOL (ALLOPURINOL) [Concomitant]
  4. PANTOZOL (PANTOPRAZOLE SODIUM) [Concomitant]
  5. METOPROLOL (METOPROLOL) [Concomitant]

REACTIONS (6)
  - Renal failure [None]
  - Respiratory failure [None]
  - Dyspnoea at rest [None]
  - Unevaluable event [None]
  - Death [None]
  - Hospitalisation [None]
